FAERS Safety Report 10020125 (Version 3)
Quarter: 2014Q2

REPORT INFORMATION
  Report Type: Spontaneous
  Country: US (occurrence: US)
  Receive Date: 20140319
  Receipt Date: 20140414
  Transmission Date: 20141212
  Serious: Yes (Hospitalization, Other)
  Sender: FDA-Public Use
  Company Number: US-JNJFOC-20140303465

PATIENT
  Age: 53 Year
  Sex: Female
  Weight: 54.09 kg

DRUGS (18)
  1. TYLENOL [Suspect]
     Route: 065
  2. TYLENOL [Suspect]
     Indication: PREMEDICATION
     Route: 065
     Dates: start: 20140221
  3. ZYRTEC [Suspect]
     Route: 065
  4. ZYRTEC [Suspect]
     Indication: PREMEDICATION
     Route: 065
     Dates: start: 20140221
  5. FOLIC ACID [Concomitant]
     Indication: NUTRITIONAL SUPPLEMENTATION
     Route: 065
  6. MULTIVITAMINS [Concomitant]
     Indication: NUTRITIONAL SUPPLEMENTATION
     Route: 065
  7. MESALAMINE [Concomitant]
     Indication: CROHN^S DISEASE
     Route: 065
  8. INSULIN ASPART SLIDING SCALE [Concomitant]
     Indication: DIABETES MELLITUS
     Route: 065
  9. INSULIN GLARGINE [Concomitant]
     Indication: DIABETES MELLITUS
     Dosage: 4UNITS EVERY HOUR
     Route: 065
  10. PIOGLITAZONE [Concomitant]
     Indication: DIABETES MELLITUS
     Route: 065
  11. SITAGLIPTIN [Concomitant]
     Indication: DIABETES MELLITUS
  12. THIORIDAZINE [Concomitant]
     Indication: PSYCHOTIC DISORDER
     Route: 065
  13. OLANZAPINE [Concomitant]
     Indication: PSYCHOTIC DISORDER
     Route: 065
  14. METFORMIN [Concomitant]
     Indication: DIABETES MELLITUS
     Route: 065
  15. GABAPENTIN [Concomitant]
     Indication: PAIN
     Route: 065
  16. INFLIXIMAB [Concomitant]
     Indication: CROHN^S DISEASE
     Route: 042
  17. RANITIDINE [Concomitant]
     Indication: GASTROOESOPHAGEAL REFLUX DISEASE
     Route: 065
  18. CITALOPRAM [Concomitant]
     Indication: DEPRESSION
     Route: 065

REACTIONS (4)
  - Blood pressure decreased [Recovered/Resolved with Sequelae]
  - Malaise [Unknown]
  - Off label use [Unknown]
  - Drug ineffective for unapproved indication [Unknown]
